FAERS Safety Report 5738788-X (Version None)
Quarter: 2008Q2

REPORT INFORMATION
  Report Type: 
  Country: None (occurrence: None)
  Receive Date: 20080515
  Receipt Date: 20080303
  Transmission Date: 20081010
  Serious: No
  Sender: FDA-Public Use
  Company Number: A0712936A

PATIENT
  Age: 53 Year
  Sex: Female

DRUGS (4)
  1. VERAMYST [Suspect]
     Route: 045
     Dates: start: 20071101
  2. ATENOLOL [Concomitant]
  3. AMBIEN [Concomitant]
  4. IMITREX [Concomitant]

REACTIONS (3)
  - GLOSSITIS [None]
  - PARAESTHESIA ORAL [None]
  - THROAT IRRITATION [None]
